FAERS Safety Report 7529893-6 (Version None)
Quarter: 2011Q2

REPORT INFORMATION
  Report Type: 
  Country: None (occurrence: None)
  Receive Date: 20110607
  Receipt Date: 20110524
  Transmission Date: 20111010
  Serious: No
  Sender: FDA-Public Use
  Company Number: US-B.I. PHARMACEUTICALS,INC./RIDGEFIELD-2011-BP-11779BP

PATIENT
  Age: 77 Year
  Sex: Female

DRUGS (6)
  1. K+ SUPP [Concomitant]
  2. ATENOLOL [Concomitant]
  3. ENALAPRIL MALEATE [Concomitant]
     Dosage: 20 MG
  4. AMLODIPINE [Concomitant]
     Indication: ATRIAL FIBRILLATION
     Dosage: 5 MG
  5. CARTIA XT [Concomitant]
     Dosage: 240 MG
  6. PRADAXA [Suspect]
     Indication: ATRIAL FIBRILLATION
     Dosage: 300 MG
     Route: 048
     Dates: start: 20110301

REACTIONS (3)
  - DYSPEPSIA [None]
  - TOOTH FRACTURE [None]
  - TOOTH EROSION [None]
